FAERS Safety Report 7929377-7 (Version None)
Quarter: 2011Q4

REPORT INFORMATION
  Report Type: 
  Country: None (occurrence: None)
  Receive Date: 20111121
  Receipt Date: 20111115
  Transmission Date: 20120403
  Serious: No
  Sender: FDA-Public Use
  Company Number: US-BIOGENIDEC-2011BI043692

PATIENT
  Sex: Female

DRUGS (1)
  1. TYSABRI [Suspect]
     Indication: MULTIPLE SCLEROSIS
     Route: 042
     Dates: start: 20110404

REACTIONS (5)
  - CENTRAL NERVOUS SYSTEM LESION [None]
  - MUSCULOSKELETAL DISORDER [None]
  - PARAESTHESIA [None]
  - HYPOAESTHESIA [None]
  - BACK PAIN [None]
